FAERS Safety Report 17958348 (Version 1)
Quarter: 2020Q2

REPORT INFORMATION
  Report Type: Spontaneous
  Country: FR (occurrence: FR)
  Receive Date: 20200629
  Receipt Date: 20200629
  Transmission Date: 20200714
  Serious: Yes (Hospitalization)
  Sender: FDA-Public Use
  Company Number: FR-PFIZER INC-2020247410

PATIENT
  Age: 13 Year
  Sex: Male

DRUGS (4)
  1. LYRICA [Suspect]
     Active Substance: PREGABALIN
     Dosage: UNK
     Route: 048
     Dates: start: 202004
  2. COCAINE [Suspect]
     Active Substance: COCAINE
     Dosage: UNK
     Route: 045
     Dates: start: 202004
  3. CANNABIS [Suspect]
     Active Substance: CANNABIS SATIVA SUBSP. INDICA TOP
     Indication: BLOOD PH NORMAL
     Dosage: UNK
     Route: 055
     Dates: start: 202004
  4. RIVOTRIL [Suspect]
     Active Substance: CLONAZEPAM
     Dosage: 20 MG
     Route: 048
     Dates: start: 202004

REACTIONS (5)
  - Somnolence [Unknown]
  - Bradycardia [Unknown]
  - Product use issue [Unknown]
  - Off label use [Unknown]
  - Poisoning [Unknown]

NARRATIVE: CASE EVENT DATE: 202004
